FAERS Safety Report 19712797 (Version 1)
Quarter: 2021Q3

REPORT INFORMATION
  Report Type: Spontaneous
  Country: ES (occurrence: ES)
  Receive Date: 20210817
  Receipt Date: 20210817
  Transmission Date: 20211014
  Serious: Yes (Other)
  Sender: FDA-Public Use
  Company Number: ES-JAZZ-2021-ES-006996

PATIENT
  Age: 68 Year
  Sex: Male

DRUGS (2)
  1. ZEPZELCA [Suspect]
     Active Substance: LURBINECTEDIN
     Indication: TRANSITIONAL CELL CARCINOMA
     Dosage: UNK 9 CYCLES
     Route: 042
     Dates: end: 20200613
  2. ZEPZELCA [Suspect]
     Active Substance: LURBINECTEDIN
     Dosage: 2.6 MILLIGRAM/SQ. METER
     Route: 042
     Dates: start: 20200613, end: 20210304

REACTIONS (6)
  - Thrombocytopenia [Unknown]
  - Anaemia [Unknown]
  - Asthenia [Unknown]
  - Dysgeusia [Unknown]
  - Neutropenia [Unknown]
  - Febrile neutropenia [Unknown]

NARRATIVE: CASE EVENT DATE: 20200613
